FAERS Safety Report 20104860 (Version 1)
Quarter: 2021Q4

REPORT INFORMATION
  Report Type: Spontaneous
  Country: NL (occurrence: NL)
  Receive Date: 20211124
  Receipt Date: 20211124
  Transmission Date: 20220303
  Serious: Yes (Hospitalization)
  Sender: FDA-Public Use
  Company Number: NL-LRB-00707492

PATIENT
  Age: 49 Year
  Sex: Male
  Weight: 50 kg

DRUGS (7)
  1. ATORVASTATIN [Suspect]
     Active Substance: ATORVASTATIN
     Indication: Blood cholesterol
     Dosage: 40 MILLIGRAM, DAILY, 1 X PER DAY 1 PIECE
     Route: 065
     Dates: start: 202107, end: 20211011
  2. PANTOPRAZOL TABLET MSR 40MG / Brand name not specified PANTOPRAZOL T [Concomitant]
     Indication: Product used for unknown indication
     Dosage: GASTRO-RESISTANT TABLET, 40 MG (MILLIGRAMS) ()
     Route: 065
  3. METOPROLOL TABLET MGA 50MG (SUCCINATE) / Brand name not specified [Concomitant]
     Indication: Product used for unknown indication
     Dosage: MODIFIED-RELEASE TABLET, 50 MG (MILLIGRAMS) ()
     Route: 065
  4. LISINOPRIL TABLET 20 MG / Brand name not specified LISINOPRIL TABLET [Concomitant]
     Indication: Product used for unknown indication
     Dosage: TABLET, 20 MG (MILLIGRAM) ()
     Route: 065
  5. DIAZEPAM TABLET  5MG / Brand name not specified DIAZEPAM TABLET  5MG [Concomitant]
     Indication: Product used for unknown indication
     Dosage: TABLET, 5 MG (MILLIGRAM) ()
     Route: 065
  6. ACETYLSALICYLIC ACID TABLET 80MG / Brand name not specified ACETYLSALI [Concomitant]
     Indication: Product used for unknown indication
     Dosage: TABLET, 80 MG (MILLIGRAM) ()
     Route: 065
  7. TICAGRELOR TABLET 90MG / Brand name not specified TICAGRELOR TABLET [Concomitant]
     Indication: Product used for unknown indication
     Dosage: TABLET, 90 MG (MILLIGRAM) ()
     Route: 065

REACTIONS (4)
  - Chest pain [Recovered/Resolved]
  - Myalgia [Recovered/Resolved]
  - Pain in extremity [Recovered/Resolved]
  - Rhabdomyolysis [Recovered/Resolved]

NARRATIVE: CASE EVENT DATE: 20210701
